FAERS Safety Report 4355276-6 (Version None)
Quarter: 2004Q2

REPORT INFORMATION
  Report Type: 
  Country: None (occurrence: None)
  Receive Date: 20040505
  Receipt Date: 20040419
  Transmission Date: 20050107
  Serious: Yes (Life-Threatening)
  Sender: FDA-Public Use
  Company Number: 2004AP01101

PATIENT
  Age: 71 Year
  Sex: Male

DRUGS (6)
  1. IRESSA [Suspect]
     Indication: LUNG ADENOCARCINOMA
     Dosage: 250 MG DAILY PO
     Route: 048
     Dates: start: 20040113, end: 20040116
  2. CISPLATIN [Concomitant]
  3. VINORELBINE TARTRATE [Concomitant]
  4. DOCETAXEL [Concomitant]
  5. GEMCITABINE [Concomitant]
  6. LOXONIN [Concomitant]

REACTIONS (11)
  - ANOREXIA [None]
  - CHILLS [None]
  - DYSPNOEA [None]
  - HYPOTENSION [None]
  - HYPOXIA [None]
  - LUNG ADENOCARCINOMA [None]
  - LUNG DISORDER [None]
  - MALAISE [None]
  - NEOPLASM MALIGNANT [None]
  - PALLOR [None]
  - PYREXIA [None]
